FAERS Safety Report 4282053-7 (Version None)
Quarter: 2004Q1

REPORT INFORMATION
  Report Type: 
  Country: None (occurrence: None)
  Receive Date: 20040128
  Receipt Date: 20040114
  Transmission Date: 20041129
  Serious: Yes (Hospitalization)
  Sender: FDA-Public Use
  Company Number: 2003-CN-00555CN

PATIENT
  Age: 52 Year
  Sex: Female

DRUGS (4)
  1. MICARDIS [Suspect]
     Indication: HYPERTENSION
     Dosage: 40 MG (40 MG) PO
     Route: 048
     Dates: start: 20030619, end: 20031204
  2. NOVAHYDROXIDE (TA) [Concomitant]
  3. ATENOLOL (ATENOLOL) (TA) [Concomitant]
  4. ASPIRIN (ACETYLSALICYLIC ACID) (TA) [Concomitant]

REACTIONS (1)
  - HYPOTENSION [None]
